FAERS Safety Report 10615162 (Version 1)
Quarter: 2014Q4

REPORT INFORMATION
  Report Type: Not Available
  Country: FR (occurrence: FR)
  Receive Date: 20141201
  Receipt Date: 20141201
  Transmission Date: 20150529
  Serious: Yes (Other)
  Sender: FDA-Public Use
  Company Number: FR-BEH-2014046619

PATIENT
  Age: 24 Year
  Sex: Female

DRUGS (4)
  1. PRIVIGEN [Suspect]
     Active Substance: HUMAN IMMUNOGLOBULIN G
     Dosage: TOTAL DAILY DOSE 35 G
     Route: 042
     Dates: start: 20140721, end: 20140725
  2. LAMICTAL [Concomitant]
     Active Substance: LAMOTRIGINE
     Dates: start: 20140501, end: 20140729
  3. PRIVIGEN [Suspect]
     Active Substance: HUMAN IMMUNOGLOBULIN G
     Dosage: TOTAL DAILY DOSE 35 G
     Route: 042
     Dates: start: 20140721, end: 20140725
  4. PRIVIGEN [Suspect]
     Active Substance: HUMAN IMMUNOGLOBULIN G
     Indication: ENCEPHALITIS AUTOIMMUNE
     Dosage: TOTAL DAILY DOSE 35 G
     Route: 042
     Dates: start: 20140721, end: 20140725

REACTIONS (11)
  - Pain in extremity [Unknown]
  - Skin exfoliation [Unknown]
  - Dyshidrotic eczema [Not Recovered/Not Resolved]
  - Toxic skin eruption [Unknown]
  - Rash pruritic [Recovered/Resolved]
  - Rash [Recovered/Resolved]
  - Skin lesion [Unknown]
  - Discomfort [Unknown]
  - Skin exfoliation [Unknown]
  - Pruritus [Unknown]
  - Dry skin [Unknown]

NARRATIVE: CASE EVENT DATE: 20140726
